FAERS Safety Report 18507790 (Version 1)
Quarter: 2020Q4

REPORT INFORMATION
  Report Type: Spontaneous
  Country: US (occurrence: US)
  Receive Date: 20201116
  Receipt Date: 20201116
  Transmission Date: 20210114
  Serious: Yes (Other)
  Sender: FDA-Public Use
  Company Number: US-PURDUE-USA-2020-0174541

PATIENT
  Age: 27 Year
  Sex: Male

DRUGS (1)
  1. OXYCONTIN [Suspect]
     Active Substance: OXYCODONE HYDROCHLORIDE
     Indication: PRODUCT USED FOR UNKNOWN INDICATION
     Dosage: 90 UNK, UNK
     Route: 048

REACTIONS (9)
  - Road traffic accident [Unknown]
  - Drug dependence [Unknown]
  - Dystonia [Unknown]
  - Depression [Unknown]
  - Cognitive disorder [Unknown]
  - Unevaluable event [Unknown]
  - Rib fracture [Unknown]
  - Craniocerebral injury [Recovered/Resolved with Sequelae]
  - Pneumothorax [Unknown]

NARRATIVE: CASE EVENT DATE: 20071128
